FAERS Safety Report 23916206 (Version 3)
Quarter: 2024Q4

REPORT INFORMATION
  Report Type: Report from Study
  Country: BR (occurrence: BR)
  Receive Date: 20240529
  Receipt Date: 20241031
  Transmission Date: 20250115
  Serious: Yes (Other)
  Sender: GLAXOSMITHKLINE
  Company Number: BR-GLAXOSMITHKLINE-BR2019GSK104166

PATIENT

DRUGS (3)
  1. BELIMUMAB [Suspect]
     Active Substance: BELIMUMAB
     Indication: Systemic lupus erythematosus
     Dosage: UNK
     Route: 042
     Dates: start: 20190211, end: 20190211
  2. BELIMUMAB [Suspect]
     Active Substance: BELIMUMAB
     Dosage: 790 MG, Z START DATE: 04-AUG-2023
     Route: 042
     Dates: end: 20240405
  3. DIPYRONE [Concomitant]
     Active Substance: DIPYRONE
     Indication: Product used for unknown indication
     Dosage: UNK

REACTIONS (19)
  - Systemic lupus erythematosus [Unknown]
  - Hypertension [Unknown]
  - Aphthous ulcer [Unknown]
  - COVID-19 [Unknown]
  - Headache [Unknown]
  - Anosmia [Unknown]
  - Ageusia [Unknown]
  - Insomnia [Unknown]
  - Fear [Unknown]
  - Influenza [Not Recovered/Not Resolved]
  - Facial pain [Not Recovered/Not Resolved]
  - Discomfort [Unknown]
  - Incorrect product administration duration [Unknown]
  - Product availability issue [Unknown]
  - Product dose omission issue [Unknown]
  - Inappropriate schedule of product administration [Recovered/Resolved]
  - Inappropriate schedule of product administration [Not Recovered/Not Resolved]
  - Product preparation issue [Unknown]
  - Memory impairment [Unknown]

NARRATIVE: CASE EVENT DATE: 20210401
